FAERS Safety Report 14892695 (Version 2)
Quarter: 2018Q3

REPORT INFORMATION
  Report Type: Spontaneous
  Country: GB (occurrence: GB)
  Receive Date: 20180514
  Receipt Date: 20180828
  Transmission Date: 20181010
  Serious: Yes (Other)
  Sender: FDA-Public Use
  Company Number: GB-GLAXOSMITHKLINE-GB2018081042

PATIENT
  Age: 16 Year
  Sex: Female
  Weight: 89 kg

DRUGS (7)
  1. MEFENAMIC ACID. [Concomitant]
     Active Substance: MEFENAMIC ACID
     Indication: DYSMENORRHOEA
     Dosage: 3 DF, UNK
     Route: 065
     Dates: start: 20170823
  2. SUDOCREM [Concomitant]
     Active Substance: LANOLIN\ZINC OXIDE
     Indication: PRODUCT USED FOR UNKNOWN INDICATION
     Dosage: USE AS DIRECTED
     Route: 065
     Dates: start: 20150501
  3. MELATONIN [Concomitant]
     Active Substance: MELATONIN
     Indication: PRODUCT USED FOR UNKNOWN INDICATION
     Dosage: AT NIGHT FOR SLEEP ; AS NECESSARY
     Route: 065
     Dates: start: 20180423
  4. LAMOTRIGINE. [Suspect]
     Active Substance: LAMOTRIGINE
     Indication: PRODUCT USED FOR UNKNOWN INDICATION
     Dosage: UNK
     Route: 065
     Dates: start: 20180105
  5. LEVETIRACETAM. [Concomitant]
     Active Substance: LEVETIRACETAM
     Indication: PRODUCT USED FOR UNKNOWN INDICATION
     Dosage: UNK
     Route: 065
     Dates: start: 20171027
  6. PERAMPANEL [Concomitant]
     Active Substance: PERAMPANEL
     Indication: PRODUCT USED FOR UNKNOWN INDICATION
     Dosage: 4 MG, UNK
     Route: 065
     Dates: start: 20180411
  7. CLOBAZAM [Concomitant]
     Active Substance: CLOBAZAM
     Indication: SEIZURE CLUSTER
     Dosage: 2 DF, UNK
     Route: 065
     Dates: start: 20180423

REACTIONS (1)
  - Mood altered [Recovered/Resolved]

NARRATIVE: CASE EVENT DATE: 20180423
